FAERS Safety Report 7655324-1 (Version None)
Quarter: 2011Q3

REPORT INFORMATION
  Report Type: 
  Country: None (occurrence: None)
  Receive Date: 20110804
  Receipt Date: 20110725
  Transmission Date: 20111222
  Serious: Yes (Hospitalization)
  Sender: FDA-Public Use
  Company Number: US-JNJFOC-20110711382

PATIENT
  Sex: Male
  Weight: 46.9 kg

DRUGS (3)
  1. METHOTREXATE [Concomitant]
  2. REMICADE [Suspect]
     Indication: CROHN'S DISEASE
     Route: 042
     Dates: start: 20110412
  3. REMICADE [Suspect]
     Route: 042
     Dates: start: 20100831

REACTIONS (1)
  - APPENDICITIS [None]
